FAERS Safety Report 15643852 (Version 2)
Quarter: 2018Q4

REPORT INFORMATION
  Report Type: Spontaneous
  Country: US (occurrence: US)
  Receive Date: 20181121
  Receipt Date: 20181226
  Transmission Date: 20190205
  Serious: Yes (Death, Hospitalization)
  Sender: FDA-Public Use
  Company Number: US-PFIZER INC-2018478294

PATIENT
  Age: 63 Year
  Sex: Male

DRUGS (2)
  1. CHANTIX [Suspect]
     Active Substance: VARENICLINE TARTRATE
     Indication: SMOKING CESSATION THERAPY
     Dosage: 1 DF, DAILY
     Dates: start: 2015
  2. CHANTIX [Suspect]
     Active Substance: VARENICLINE TARTRATE
     Indication: ROUTINE HEALTH MAINTENANCE

REACTIONS (2)
  - Crying [Unknown]
  - Completed suicide [Fatal]
